FAERS Safety Report 4654467-4 (Version None)
Quarter: 2005Q2

REPORT INFORMATION
  Report Type: 
  Country: None (occurrence: None)
  Receive Date: 20050404
  Receipt Date: 20050107
  Transmission Date: 20051028
  Serious: No
  Sender: FDA-Public Use
  Company Number: USA050187779

PATIENT
  Age: 42 Year
  Sex: Male

DRUGS (1)
  1. CYMBALTA [Suspect]
     Indication: DEPRESSION
     Dosage: 120 MG DAY

REACTIONS (3)
  - ACCIDENTAL OVERDOSE [None]
  - DEPRESSION [None]
  - MEDICATION ERROR [None]
